FAERS Safety Report 25215471 (Version 1)
Quarter: 2025Q2

REPORT INFORMATION
  Report Type: Spontaneous
  Country: US (occurrence: US)
  Receive Date: 20250418
  Receipt Date: 20250418
  Transmission Date: 20250717
  Serious: Yes (Other)
  Sender: Phathom Pharmaceuticals
  Company Number: US-PHATHOM PHARMACEUTICALS INC.-2025PHT00137

PATIENT
  Sex: Female

DRUGS (1)
  1. VOQUEZNA [Suspect]
     Active Substance: VONOPRAZAN FUMARATE
     Dosage: 20 MG, 1X/DAY
     Route: 048
     Dates: start: 20240422

REACTIONS (2)
  - Bone loss [Unknown]
  - Tooth resorption [Unknown]

NARRATIVE: CASE EVENT DATE: 20240101
